FAERS Safety Report 6365880-1 (Version None)
Quarter: 2009Q3

REPORT INFORMATION
  Report Type: 
  Country: None (occurrence: None)
  Receive Date: 20090919
  Receipt Date: 20090818
  Transmission Date: 20100115
  Serious: No
  Sender: FDA-Public Use
  Company Number: US-ABBOTT-09P-163-0593145-00

PATIENT
  Sex: Female
  Weight: 54.48 kg

DRUGS (3)
  1. HUMIRA [Suspect]
     Indication: RHEUMATOID ARTHRITIS
     Dosage: PEN
     Route: 058
     Dates: start: 20090801
  2. HUMIRA [Suspect]
     Dosage: PFS
     Dates: start: 20090701, end: 20090801
  3. PREDNISONE [Concomitant]
     Indication: RHEUMATOID ARTHRITIS
     Route: 048

REACTIONS (2)
  - DRUG DOSE OMISSION [None]
  - WRONG TECHNIQUE IN DRUG USAGE PROCESS [None]
